FAERS Safety Report 15261105 (Version 1)
Quarter: 2018Q3

REPORT INFORMATION
  Report Type: Spontaneous
  Country: US (occurrence: US)
  Receive Date: 20180719
  Receipt Date: 20180719
  Transmission Date: 20181010
  Serious: Yes (Disabling)
  Sender: FDA-Public Use
  Company Number: None

PATIENT
  Age: 5 Year
  Sex: Male
  Weight: 22.5 kg

DRUGS (1)
  1. OFLOXACIN. [Suspect]
     Active Substance: OFLOXACIN
     Indication: CONJUNCTIVITIS
     Route: 047
     Dates: start: 20160425, end: 20160508

REACTIONS (2)
  - Headache [None]
  - VIth nerve paralysis [None]

NARRATIVE: CASE EVENT DATE: 20161010
